FAERS Safety Report 7875275-7 (Version None)
Quarter: 2011Q4

REPORT INFORMATION
  Report Type: 
  Country: None (occurrence: None)
  Receive Date: 20111031
  Receipt Date: 20110831
  Transmission Date: 20120403
  Serious: Yes (Death, Hospitalization, Other)
  Sender: FDA-Public Use
  Company Number: SE-BAYER-200937967GPV

PATIENT
  Age: 63 Year
  Sex: Female
  Weight: 49 kg

DRUGS (7)
  1. NEXAVAR [Suspect]
     Indication: HEPATIC NEOPLASM MALIGNANT
     Dosage: 400 MG, BID
     Route: 048
     Dates: start: 20091023, end: 20091104
  2. PRIMPERAN TAB [Concomitant]
     Indication: NAUSEA
     Dosage: 10 MG (DAILY DOSE), , ORAL
     Route: 048
     Dates: start: 20091029
  3. PREDNISOLONE [Concomitant]
     Indication: NAUSEA
     Dosage: 10 MG (DAILY DOSE), , ORAL
     Route: 048
     Dates: start: 20091029
  4. PREDNISOLONE [Concomitant]
     Dosage: 5 MG (DAILY DOSE), ,
     Dates: start: 20091029
  5. CLEMASTINE FUMARATE [Concomitant]
     Indication: PRURITUS
     Dosage: 1 MG (DAILY DOSE), , ORAL
     Route: 048
     Dates: start: 20091022
  6. ZOPIKLON [Concomitant]
     Indication: INSOMNIA
     Dosage: 5 MG (DAILY DOSE), QD,
     Dates: start: 20091022
  7. OXYCODONE HCL [Concomitant]
     Indication: PAIN
     Route: 048
     Dates: start: 20091005

REACTIONS (5)
  - WEIGHT DECREASED [None]
  - DECREASED APPETITE [None]
  - HEPATIC NEOPLASM MALIGNANT [None]
  - FATIGUE [None]
  - DEHYDRATION [None]
